FAERS Safety Report 13769123 (Version 3)
Quarter: 2017Q3

REPORT INFORMATION
  Report Type: Report from Study
  Country: US (occurrence: US)
  Receive Date: 20170719
  Receipt Date: 20170817
  Transmission Date: 20171127
  Serious: No
  Sender: FDA-Public Use
  Company Number: US-AMGEN-USASL2017106624

PATIENT
  Age: 54 Year
  Sex: Female

DRUGS (3)
  1. ENBREL [Suspect]
     Active Substance: ETANERCEPT
     Dosage: UNK
     Route: 065
     Dates: start: 201707
  2. ENBREL [Suspect]
     Active Substance: ETANERCEPT
     Indication: PSORIASIS
     Dosage: 50 MG, 2 TIMES/WK
     Route: 065
     Dates: start: 2005
  3. HUMIRA [Concomitant]
     Active Substance: ADALIMUMAB
     Indication: PSORIASIS
     Dosage: UNK

REACTIONS (7)
  - Wrong technique in product usage process [Unknown]
  - Injection site haemorrhage [Unknown]
  - Injection site pain [Unknown]
  - Injection site bruising [Unknown]
  - Psoriasis [Unknown]
  - Arthralgia [Unknown]
  - Injection site erythema [Unknown]

NARRATIVE: CASE EVENT DATE: 201707
